FAERS Safety Report 23819235 (Version 1)
Quarter: 2024Q2

REPORT INFORMATION
  Report Type: Other
  Country: IR (occurrence: None)
  Receive Date: 20240506
  Receipt Date: 20240506
  Transmission Date: 20240716
  Serious: Yes (Other)
  Sender: FDA-Public Use
  Company Number: IR-ROCHE-3555186

PATIENT
  Age: 27 Year
  Sex: Female
  Weight: 96 kg

DRUGS (2)
  1. BEVACIZUMAB [Suspect]
     Active Substance: BEVACIZUMAB
     Indication: Diabetic retinopathy
     Dosage: 1.25 MG/ 0.05 ML
     Route: 050
  2. BEVACIZUMAB [Suspect]
     Active Substance: BEVACIZUMAB
     Indication: Retinal haemorrhage

REACTIONS (4)
  - Abortion spontaneous [Unknown]
  - Off label use [Unknown]
  - Off label use [Unknown]
  - Maternal exposure during pregnancy [Unknown]
